FAERS Safety Report 9932165 (Version 2)
Quarter: 2014Q1

REPORT INFORMATION
  Report Type: Spontaneous
  Country: US (occurrence: US)
  Receive Date: 20140228
  Receipt Date: 20140228
  Transmission Date: 20141002
  Serious: No
  Sender: FDA-Public Use
  Company Number: US-ABBVIE-13P-163-1148819-00

PATIENT
  Age: 64 Year
  Sex: Male
  Weight: 81.72 kg

DRUGS (5)
  1. ANDROGEL [Suspect]
     Indication: BLOOD TESTOSTERONE DECREASED
     Route: 061
     Dates: start: 20130911
  2. ANDROGEL [Suspect]
     Route: 061
  3. AMLODIPINE [Concomitant]
     Indication: HYPERTENSION
  4. OXYCODONE [Concomitant]
     Indication: ARTHRALGIA
  5. SIMVASTATIN [Concomitant]
     Indication: BLOOD CHOLESTEROL INCREASED

REACTIONS (2)
  - Drug administered at inappropriate site [Not Recovered/Not Resolved]
  - Asthenia [Not Recovered/Not Resolved]
